FAERS Safety Report 6385344-9 (Version None)
Quarter: 2009Q4

REPORT INFORMATION
  Report Type: 
  Country: None (occurrence: None)
  Receive Date: 20091002
  Receipt Date: 20080807
  Transmission Date: 20100525
  Serious: Yes (Other)
  Sender: FDA-Public Use
  Company Number: US-ASTRAZENECA-2008UW16330

PATIENT
  Age: 67 Year
  Sex: Female

DRUGS (4)
  1. ARIMIDEX [Suspect]
     Indication: BREAST CANCER
     Route: 048
     Dates: start: 20050101
  2. FLAX OIL [Concomitant]
  3. NONI JUICE [Concomitant]
  4. THYROID MEDICATION [Concomitant]

REACTIONS (6)
  - ARTHRALGIA [None]
  - ARTHROPATHY [None]
  - DIARRHOEA [None]
  - JOINT SWELLING [None]
  - MUSCULOSKELETAL STIFFNESS [None]
  - ONYCHOCLASIS [None]
